FAERS Safety Report 9192795 (Version 2)
Quarter: 2013Q2

REPORT INFORMATION
  Report Type: Spontaneous
  Country: US (occurrence: US)
  Receive Date: 20130327
  Receipt Date: 20130513
  Transmission Date: 20140414
  Serious: Yes (Death, Hospitalization)
  Sender: FDA-Public Use
  Company Number: US-PFIZER INC-2013094439

PATIENT
  Age: 68 Year
  Sex: Male

DRUGS (12)
  1. VFEND [Suspect]
     Indication: PYREXIA
     Dosage: 200 MG, 2X/DAY
     Route: 048
     Dates: start: 20120307
  2. ACYCLOVIR [Concomitant]
     Dosage: 400 MG, 2X/DAY
     Route: 048
  3. SPRYCEL [Concomitant]
     Indication: SKIN REACTION
     Dosage: 50 MG DAILY
     Route: 048
  4. SPRYCEL [Concomitant]
     Indication: ACUTE LYMPHOCYTIC LEUKAEMIA
  5. COLACE [Concomitant]
     Dosage: 100 MG, 2X/DAY
     Route: 048
  6. LOVENOX [Concomitant]
     Indication: DEEP VEIN THROMBOSIS
     Dosage: 80 MG DAILY
     Route: 058
  7. NEXIUM [Concomitant]
     Dosage: 40 MG DAILY
     Route: 048
  8. FOLIC ACID [Concomitant]
     Dosage: 400 MG DAILY
     Route: 048
  9. DILAUDID [Concomitant]
     Indication: PAIN
     Dosage: 4 MG, AS NEEDED
  10. ZOFRAN [Concomitant]
     Indication: NAUSEA
     Dosage: 8 MG, 3X/DAY
  11. ZOFRAN [Concomitant]
     Indication: VOMITING
  12. LYRICA [Concomitant]
     Dosage: 200 MG, 2X/DAY
     Route: 048

REACTIONS (1)
  - Cardio-respiratory arrest [Fatal]
